FAERS Safety Report 19279732 (Version 1)
Quarter: 2021Q2

REPORT INFORMATION
  Report Type: Report from Study
  Country: IL (occurrence: IL)
  Receive Date: 20210520
  Receipt Date: 20210520
  Transmission Date: 20210717
  Serious: Yes (Hospitalization)
  Sender: FDA-Public Use
  Company Number: IL-KARYOPHARM-2021KPT000670

PATIENT
  Age: 49 Year
  Sex: Male

DRUGS (20)
  1. LACTULOSE. [Concomitant]
     Active Substance: LACTULOSE
     Indication: SUPPORTIVE CARE
     Dosage: 30 ML, SINGLE
     Route: 048
     Dates: start: 20210419, end: 20210419
  2. ATROPINE. [Concomitant]
     Active Substance: ATROPINE
     Indication: PREMEDICATION
     Dosage: 0.5 MG, 1X/3 WEEKS
     Route: 042
     Dates: start: 20210420, end: 20210420
  3. DEXAMETHASONE. [Concomitant]
     Active Substance: DEXAMETHASONE
     Indication: SUPPORTIVE CARE
     Dosage: 4 MG, QD
     Route: 048
     Dates: start: 20210422, end: 20210424
  4. NEULASTIM [Concomitant]
     Active Substance: PEGFILGRASTIM
     Indication: PROPHYLAXIS
     Dosage: 6 MG, SINGLE
     Route: 058
     Dates: start: 20210423, end: 20210423
  5. IRINOTECAN [Suspect]
     Active Substance: IRINOTECAN
     Indication: COLORECTAL CANCER
     Dosage: 360 MG, 1X/2 WEEKS
     Route: 042
     Dates: start: 20210309, end: 20210321
  6. IRINOTECAN [Suspect]
     Active Substance: IRINOTECAN
     Dosage: 248 MG, 1X/2 WEEKS
     Route: 042
     Dates: start: 20210420
  7. LEUCOVORIN. [Suspect]
     Active Substance: LEUCOVORIN
     Indication: COLORECTAL CANCER
     Dosage: 800 MG, 1X/2 WEEKS
     Route: 042
     Dates: start: 20210309, end: 20210321
  8. 5?FLUOROURACIL [Suspect]
     Active Substance: FLUOROURACIL
     Indication: COLORECTAL CANCER
     Dosage: 800 MG
     Route: 042
     Dates: start: 20210309
  9. 5?FLUOROURACIL [Suspect]
     Active Substance: FLUOROURACIL
     Dosage: 4800 MG, 1X/2 WEEKS
     Route: 042
     Dates: start: 20210309, end: 20210321
  10. 5?FLUOROURACIL [Suspect]
     Active Substance: FLUOROURACIL
     Dosage: 4254 MG, 1X/2 WEEKS
     Route: 042
     Dates: start: 20210504
  11. AKYNZEO [Concomitant]
     Active Substance: NETUPITANT\PALONOSETRON HYDROCHLORIDE
     Indication: PREMEDICATION
     Dosage: 1 DOSAGE FORM, 1X/2 WEEKS
     Route: 048
     Dates: start: 20210330
  12. FERRLECIT [FERRIC SODIUM GLUCONATE COMPLEX] [Concomitant]
     Indication: PRODUCT USED FOR UNKNOWN INDICATION
     Dosage: 125 MG, SINGLE
     Route: 042
     Dates: start: 20210422, end: 20210422
  13. GLYCERIN SUPPOSITORIES [Concomitant]
     Indication: PRODUCT USED FOR UNKNOWN INDICATION
     Dosage: 1 DOSAGE FORM, PRN
     Route: 054
     Dates: start: 20210428
  14. PRAMIN [METOCLOPRAMIDE HYDROCHLORIDE] [Concomitant]
     Active Substance: METOCLOPRAMIDE HYDROCHLORIDE
     Indication: PRODUCT USED FOR UNKNOWN INDICATION
     Dosage: 10 MG, PRN
     Route: 048
     Dates: start: 20210330
  15. BISACODYL. [Concomitant]
     Active Substance: BISACODYL
     Indication: PRODUCT USED FOR UNKNOWN INDICATION
     Dosage: 1 DOSAGE FORM, PRN
     Route: 048
     Dates: start: 20210426
  16. SELINEXOR [Suspect]
     Active Substance: SELINEXOR
     Indication: COLORECTAL CANCER
     Dosage: 40 MG DAYS 1,3,15, 18
     Route: 048
     Dates: start: 20210309, end: 20210321
  17. IRINOTECAN [Suspect]
     Active Substance: IRINOTECAN
     Dosage: 288 MG, 1X/2 WEEKS
     Route: 042
     Dates: start: 20210330
  18. SELINEXOR [Suspect]
     Active Substance: SELINEXOR
     Dosage: 40 MG DAYS 1,3,15, 18
     Route: 048
     Dates: start: 20210330
  19. 5?FLUOROURACIL [Suspect]
     Active Substance: FLUOROURACIL
     Dosage: 4300 MG, 1X/2 WEEKS
     Route: 042
     Dates: start: 20210330
  20. OMEPRADEX [Concomitant]
     Active Substance: OMEPRAZOLE
     Indication: PROPHYLAXIS
     Dosage: 10 MG, QD
     Route: 048
     Dates: start: 202002

REACTIONS (1)
  - Pyrexia [Unknown]

NARRATIVE: CASE EVENT DATE: 20210511
